FAERS Safety Report 6695993-6 (Version None)
Quarter: 2010Q2

REPORT INFORMATION
  Report Type: 
  Country: None (occurrence: None)
  Receive Date: 20100426
  Receipt Date: 20100420
  Transmission Date: 20101027
  Serious: Yes (Other)
  Sender: FDA-Public Use
  Company Number: DE-NOVOPROD-292573

PATIENT
  Sex: Male
  Weight: 102.8 kg

DRUGS (6)
  1. LIRAGLUTIDE FLEXPEN [Suspect]
     Indication: TYPE 2 DIABETES MELLITUS
     Dosage: 1.8 MG, QD
     Route: 058
     Dates: start: 20090409, end: 20091119
  2. METFORMIN [Concomitant]
     Dosage: 1500 MG, QD
     Dates: start: 20030101
  3. RAMIPRIL [Concomitant]
     Dosage: 5 MG, QD
     Route: 048
     Dates: start: 20050101
  4. SIMVABETA [Concomitant]
     Dosage: 20 MG, QD
     Route: 048
     Dates: start: 20051001
  5. DICLOFENAC [Concomitant]
     Dosage: UNK, QD
     Route: 048
     Dates: start: 20090512, end: 20090513
  6. MICARDIS [Concomitant]
     Dosage: 80 MG, QD
     Route: 048
     Dates: start: 20090613, end: 20090613

REACTIONS (3)
  - BLOOD CALCITONIN INCREASED [None]
  - GOITRE [None]
  - THYROID NEOPLASM [None]
